FAERS Safety Report 4752100-4 (Version None)
Quarter: 2005Q3

REPORT INFORMATION
  Report Type: 
  Country: None (occurrence: None)
  Receive Date: 20050825
  Receipt Date: 20050818
  Transmission Date: 20060218
  Serious: Yes (Hospitalization)
  Sender: FDA-Public Use
  Company Number: US-BOEHRINGER INGELHEIM PHARMACEUTICALS, INC.-2005-BP-14502BP

PATIENT
  Sex: Female

DRUGS (5)
  1. MOBIC [Suspect]
  2. MEVALOTIN [Suspect]
  3. SEPAZON [Suspect]
  4. AMOXAN [Suspect]
  5. EVISTA [Suspect]
     Dates: start: 20030101

REACTIONS (4)
  - BLOOD CREATINE PHOSPHOKINASE INCREASED [None]
  - MOVEMENT DISORDER [None]
  - MUSCULAR WEAKNESS [None]
  - RHABDOMYOLYSIS [None]
